FAERS Safety Report 19180543 (Version 1)
Quarter: 2021Q2

REPORT INFORMATION
  Report Type: Report from Study
  Country: US (occurrence: US)
  Receive Date: 20210426
  Receipt Date: 20210426
  Transmission Date: 20210717
  Serious: Yes (Life-Threatening, Other)
  Sender: FDA-Public Use
  Company Number: US-PFIZER INC-2021445565

PATIENT
  Age: 56 Year
  Sex: Male
  Weight: 82.6 kg

DRUGS (13)
  1. DOCETAXEL. [Suspect]
     Active Substance: DOCETAXEL
     Indication: NEOPLASM
     Dosage: 75 MG/M2, 1 IN 3 WEEK
     Route: 042
     Dates: start: 20210301
  2. GABAPENTIN. [Concomitant]
     Active Substance: GABAPENTIN
     Indication: NEUROPATHY PERIPHERAL
     Dosage: 300 MG, 3 IN 1 D
     Route: 048
     Dates: start: 20190124
  3. FUROSEMIDE. [Concomitant]
     Active Substance: FUROSEMIDE
     Indication: FLUID RETENTION
  4. LORATADINE. [Concomitant]
     Active Substance: LORATADINE
     Indication: SEASONAL ALLERGY
     Dosage: 10 MG, 1 IN 1 D
     Route: 048
     Dates: start: 2011
  5. ABBV 155 [Suspect]
     Active Substance: MIRZOTAMAB CLEZUTOCLAX
     Indication: NEOPLASM
     Dosage: 16 MG/KG, 1 IN 3 WEEKS
     Route: 042
     Dates: start: 20210301
  6. VITAMIN D3 [Concomitant]
     Active Substance: CHOLECALCIFEROL
     Indication: VITAMIN D DEFICIENCY
     Dosage: 1000 UNIT, 1 IN 1 D
     Route: 048
     Dates: start: 20130920
  7. IBUPROFEN. [Concomitant]
     Active Substance: IBUPROFEN
     Indication: CANCER PAIN
     Dosage: 600 MG, AS REQUIRED
     Route: 048
     Dates: start: 20190118
  8. FUROSEMIDE. [Concomitant]
     Active Substance: FUROSEMIDE
     Indication: CHEMOTHERAPY
     Dosage: 10 MG
     Route: 048
     Dates: start: 2020
  9. OXYCODONE [Concomitant]
     Active Substance: OXYCODONE
     Indication: CANCER PAIN
     Dosage: 5 MG, AS REQUIRED
     Route: 048
     Dates: start: 20210201
  10. ACETAMINOPHEN. [Concomitant]
     Active Substance: ACETAMINOPHEN
     Indication: CANCER PAIN
     Dosage: 500 MG, AS REQUIRED
     Route: 048
     Dates: start: 201701
  11. THERAGRAN?M [ASCORBIC ACID;CALCIUM CARBONATE;COPPER;CYANOCOBALAMIN;ERG [Concomitant]
     Indication: SUPPLEMENTATION THERAPY
     Dosage: 1 IN 1 D
     Route: 048
     Dates: start: 2011
  12. FERROUS SULFATE. [Concomitant]
     Active Substance: FERROUS SULFATE
     Indication: ANAEMIA
     Dosage: 1 IN 1 D
     Route: 048
     Dates: start: 201901
  13. EPINEPHRINE. [Concomitant]
     Active Substance: EPINEPHRINE
     Indication: ALLERGY TO ARTHROPOD STING
     Dosage: 0.3 MG, AS REQUIRED
     Route: 058
     Dates: start: 2017

REACTIONS (1)
  - Neutrophil count decreased [Not Recovered/Not Resolved]

NARRATIVE: CASE EVENT DATE: 20210308
